FAERS Safety Report 19982475 (Version 1)
Quarter: 2021Q4

REPORT INFORMATION
  Report Type: Spontaneous
  Country: TR (occurrence: TR)
  Receive Date: 20211022
  Receipt Date: 20211022
  Transmission Date: 20220303
  Serious: Yes (Other)
  Sender: FDA-Public Use
  Company Number: TR-AMGEN-TURSP2021159373

PATIENT
  Age: 58 Year
  Sex: Female

DRUGS (3)
  1. XGEVA [Suspect]
     Active Substance: DENOSUMAB
     Indication: Breast mass
     Dosage: UNK
     Route: 058
     Dates: start: 20200217
  2. PALBOCICLIB [Suspect]
     Active Substance: PALBOCICLIB
     Indication: Breast mass
     Dosage: UNK
     Route: 048
     Dates: start: 20200217
  3. LETROZOLE [Suspect]
     Active Substance: LETROZOLE
     Indication: Breast mass
     Dosage: UNK
     Route: 048
     Dates: start: 20200217

REACTIONS (1)
  - Neutropenia [Unknown]
